FAERS Safety Report 12491832 (Version 1)
Quarter: 2016Q2

REPORT INFORMATION
  Report Type: Spontaneous
  Country: TR (occurrence: TR)
  Receive Date: 20160623
  Receipt Date: 20160623
  Transmission Date: 20160815
  Serious: No
  Sender: FDA-Public Use
  Company Number: TR-SA-2016SA112106

PATIENT
  Age: 36 Year
  Sex: Female
  Weight: 84 kg

DRUGS (5)
  1. PLAQUENIL [Concomitant]
     Active Substance: HYDROXYCHLOROQUINE SULFATE
     Indication: ARTHRALGIA
     Dosage: START DATE: 3 YEARS AGO?STOP DATE : 20 DAYS AFTER MISSING
     Route: 048
  2. ARAVA [Suspect]
     Active Substance: LEFLUNOMIDE
     Indication: ARTHRALGIA
     Dosage: START DATE: 3YEARS AGO)
     Route: 048
  3. METHOTREXATE (METHOTREXATE SODIUM) [Concomitant]
     Active Substance: METHOTREXATE SODIUM
     Indication: ARTHRALGIA
     Route: 048
  4. DELTACORTRIL [Concomitant]
     Active Substance: PREDNISOLONE
     Indication: ARTHRALGIA
     Dosage: START DATE: 3 YEARS AGO?STOP DATE : 20 DAYS AFTER MISSING PERIOD
     Route: 048
  5. CACIT VITAMINE D3 [Concomitant]
     Active Substance: CALCIUM CARBONATE\CHOLECALCIFEROL
     Indication: ARTHRALGIA
     Dosage: START DATE:2 YEARS AGO?STOP: 20 DAYS AFTER MISSING PERIODS
     Route: 048

REACTIONS (1)
  - Exposure during pregnancy [Unknown]
